FAERS Safety Report 24195140 (Version 1)
Quarter: 2024Q3

REPORT INFORMATION
  Report Type: Spontaneous
  Country: DE (occurrence: DE)
  Receive Date: 20240809
  Receipt Date: 20240809
  Transmission Date: 20241016
  Serious: Yes (Other)
  Sender: LUNDBECK
  Company Number: DE-SANOFI-02162887

PATIENT

DRUGS (1)
  1. SABRIL [Suspect]
     Active Substance: VIGABATRIN
     Indication: Epilepsy
     Dosage: 800 MG, QD
     Dates: start: 20240330

REACTIONS (7)
  - Diplegia [Unknown]
  - Vitamin B6 increased [Unknown]
  - Nerve injury [Unknown]
  - Areflexia [Unknown]
  - Oesophageal disorder [Unknown]
  - Hypersensitivity [Unknown]
  - Platelet count increased [Unknown]

NARRATIVE: CASE EVENT DATE: 20240101
